FAERS Safety Report 11145371 (Version 3)
Quarter: 2016Q4

REPORT INFORMATION
  Report Type: Report from Study
  Country: CA (occurrence: CA)
  Receive Date: 20150528
  Receipt Date: 20161013
  Transmission Date: 20170206
  Serious: Yes (Other)
  Sender: FDA-Public Use
  Company Number: PHHY2015CA062646

PATIENT
  Age: 68 Year
  Sex: Female

DRUGS (5)
  1. ACLASTA [Suspect]
     Active Substance: ZOLEDRONIC ACID
     Dosage: 1 DF, 5 MG/100 ML
     Route: 041
     Dates: start: 20150521
  2. D TABS [Concomitant]
     Indication: PRODUCT USED FOR UNKNOWN INDICATION
     Dosage: 10000 OT, UNK
     Route: 048
  3. ACLASTA [Suspect]
     Active Substance: ZOLEDRONIC ACID
     Indication: OSTEOPOROSIS
     Dosage: 5 MG, UNK
     Route: 042
     Dates: start: 20120430
  4. ACLASTA [Suspect]
     Active Substance: ZOLEDRONIC ACID
     Dosage: 1 DF, 5 MG/100 ML
     Route: 041
     Dates: start: 20130521
  5. ACLASTA [Suspect]
     Active Substance: ZOLEDRONIC ACID
     Dosage: 1 DF, 5 MG/100 ML
     Route: 041
     Dates: start: 20140521

REACTIONS (8)
  - Lymphadenopathy [Unknown]
  - Lymphoma [Unknown]
  - Follicle centre lymphoma, follicular grade I, II, III stage III [Unknown]
  - Cytology [Unknown]
  - Night sweats [Unknown]
  - Parathyroid tumour [Unknown]
  - Pyrexia [Unknown]
  - Local swelling [Unknown]

NARRATIVE: CASE EVENT DATE: 201512
